FAERS Safety Report 7247170-8 (Version None)
Quarter: 2011Q1

REPORT INFORMATION
  Report Type: 
  Country: None (occurrence: None)
  Receive Date: 20110127
  Receipt Date: 20110117
  Transmission Date: 20110831
  Serious: Yes (Other)
  Sender: FDA-Public Use
  Company Number: CA-JNJFOC-20110104993

PATIENT
  Sex: Male

DRUGS (4)
  1. MESALAMINE [Concomitant]
     Route: 065
  2. ATIVAN [Concomitant]
     Dosage: PRN
     Route: 065
  3. IMURAN [Concomitant]
     Route: 065
  4. REMICADE [Suspect]
     Indication: PRODUCT USED FOR UNKNOWN INDICATION
     Route: 042

REACTIONS (5)
  - JOINT SPRAIN [None]
  - SYNCOPE [None]
  - MUSCLE RIGIDITY [None]
  - FALL [None]
  - PANIC ATTACK [None]
